FAERS Safety Report 21416581 (Version 1)
Quarter: 2022Q4

REPORT INFORMATION
  Report Type: Spontaneous
  Country: FR (occurrence: FR)
  Receive Date: 20221006
  Receipt Date: 20221006
  Transmission Date: 20230113
  Serious: Yes (Other)
  Sender: FDA-Public Use
  Company Number: None

PATIENT
  Age: 78 Year
  Sex: Female
  Weight: 57 kg

DRUGS (4)
  1. DOXORUBICIN [Suspect]
     Active Substance: DOXORUBICIN
     Indication: Lymphoma
     Dosage: UNIT DOSE: 84 MG, FREQ TIME 1 DAY, DURATION, 1 DAYS
     Route: 065
     Dates: start: 20220901, end: 20220901
  2. ADCETRIS [Suspect]
     Active Substance: BRENTUXIMAB VEDOTIN
     Indication: Lymphoma
     Dosage: UNIT DOSE: 108 MG, FREQ TIME 1 TOTAL, DURATION, 1 DAYS, STRENGTH: 50 MG
     Dates: start: 20220901, end: 20220901
  3. CYCLOPHOSPHAMIDE [Suspect]
     Active Substance: CYCLOPHOSPHAMIDE
     Indication: Lymphoma
     Dosage: CYCLOPHOSPHAMIDE SANDOZ, UNIT DOSE: 1260 MG, FREQ TIME 1 TOTAL, DURATION, 1 DAYS
     Route: 065
     Dates: start: 20220901, end: 20220901
  4. AUGMENTIN [Suspect]
     Active Substance: AMOXICILLIN\CLAVULANATE POTASSIUM
     Indication: Pyrexia
     Dosage: UNIT DOSE: 1 GM, FREQ TIME 8 HOURS, DURATION, 6 DAYS
     Dates: start: 20220730, end: 20220805

REACTIONS (1)
  - Cholestasis [Not Recovered/Not Resolved]

NARRATIVE: CASE EVENT DATE: 20220905
